FAERS Safety Report 14994037 (Version 1)
Quarter: 2018Q2

REPORT INFORMATION
  Report Type: Spontaneous
  Country: US (occurrence: US)
  Receive Date: 20180611
  Receipt Date: 20180611
  Transmission Date: 20180711
  Serious: No
  Sender: FDA-Public Use
  Company Number: US-APOTEX-2017AP012853

PATIENT
  Sex: Male

DRUGS (1)
  1. AZELASTINE HYDROCHLORIDE NASAL SOLUTION (NASAL SPRAY) [Suspect]
     Active Substance: AZELASTINE HYDROCHLORIDE
     Indication: NASAL CONGESTION
     Dosage: 2 DROPS PER NOSTRILS IN THE MORNING AND IN THE AFTERNOON
     Route: 065
     Dates: start: 20170604, end: 20170604

REACTIONS (1)
  - Disorientation [Recovered/Resolved]

NARRATIVE: CASE EVENT DATE: 20170605
